FAERS Safety Report 10217392 (Version 1)
Quarter: 2014Q2

REPORT INFORMATION
  Report Type: Spontaneous
  Country: GB (occurrence: GB)
  Receive Date: 20140604
  Receipt Date: 20140604
  Transmission Date: 20141212
  Serious: Yes (Other)
  Sender: FDA-Public Use
  Company Number: GB-PFIZER INC-2014150101

PATIENT
  Age: 39 Year
  Sex: Female

DRUGS (3)
  1. PREGABALIN [Suspect]
     Dosage: 300 MG, 2X/DAY
     Route: 048
     Dates: start: 20140510, end: 20140510
  2. DIAZEPAM [Concomitant]
     Dosage: 10 MG, 2X/DAY
     Route: 048
  3. METHADONE [Concomitant]
     Indication: DRUG DEPENDENCE
     Dosage: 25 MG, UNK
     Route: 048

REACTIONS (2)
  - Myoclonic epilepsy [Recovered/Resolved]
  - Generalised tonic-clonic seizure [Recovered/Resolved]
